FAERS Safety Report 20429000 (Version 1)
Quarter: 2022Q1

REPORT INFORMATION
  Report Type: Other
  Country: CA (occurrence: None)
  Receive Date: 20220204
  Receipt Date: 20220204
  Transmission Date: 20220423
  Serious: Yes (Other)
  Sender: FDA-Public Use
  Company Number: CA-ROCHE-3013707

PATIENT

DRUGS (4)
  1. CAPECITABINE [Suspect]
     Active Substance: CAPECITABINE
     Indication: HER2 positive breast cancer
     Route: 048
  2. PACLITAXEL [Suspect]
     Active Substance: PACLITAXEL
     Indication: HER2 positive breast cancer
     Route: 065
  3. VINORELBINE [Suspect]
     Active Substance: VINORELBINE TARTRATE
     Indication: HER2 positive breast cancer
     Route: 065
  4. ZANIDATAMAB [Suspect]
     Active Substance: ZANIDATAMAB
     Indication: HER2 positive breast cancer
     Dosage: (20 MG/KG ONCE IN 2 WEEKS (Q2W) OR 30 MG/KG ONCE IN 3 WEEKS (Q3W)
     Route: 065

REACTIONS (6)
  - Neutropenia [Unknown]
  - Neutrophil count decreased [Unknown]
  - Diarrhoea [Unknown]
  - Pleural effusion [Unknown]
  - Upper respiratory tract infection [Unknown]
  - Pneumonitis [Unknown]
